FAERS Safety Report 8948211 (Version 1)
Quarter: 2012Q4

REPORT INFORMATION
  Report Type: Spontaneous
  Country: US (occurrence: None)
  Receive Date: 20121130
  Receipt Date: 20121130
  Transmission Date: 20130627
  Serious: Yes (Other)
  Sender: FDA-Public Use
  Company Number: None

PATIENT
  Sex: Male
  Weight: 24.95 kg

DRUGS (1)
  1. KEPPRA XR [Suspect]
     Indication: GENERALIZED CONVULSIVE EPILEPSY, WITH INTRACTABLE EPILEPSY
     Dosage: 4 tabs QAM

continuous

REACTIONS (3)
  - Convulsion [None]
  - Condition aggravated [None]
  - Product substitution issue [None]
